FAERS Safety Report 7788419-2 (Version None)
Quarter: 2011Q3

REPORT INFORMATION
  Report Type: 
  Country: None (occurrence: None)
  Receive Date: 20110927
  Receipt Date: 20110908
  Transmission Date: 20111222
  Serious: Yes (Other)
  Sender: FDA-Public Use
  Company Number: 2011SP042512

PATIENT
  Age: 70 Year
  Sex: Female

DRUGS (2)
  1. VENTOLIN [Concomitant]
  2. DULERA ORAL INHALATION [Suspect]
     Indication: PRODUCT USED FOR UNKNOWN INDICATION
     Dosage: 2 DF;BID;INH
     Route: 055
     Dates: start: 20110901, end: 20110903

REACTIONS (3)
  - THROAT TIGHTNESS [None]
  - DYSPHONIA [None]
  - DRUG HYPERSENSITIVITY [None]
